FAERS Safety Report 7290820-0 (Version None)
Quarter: 2011Q1

REPORT INFORMATION
  Report Type: 
  Country: None (occurrence: None)
  Receive Date: 20110214
  Receipt Date: 20110204
  Transmission Date: 20110831
  Serious: Yes (Other)
  Sender: FDA-Public Use
  Company Number: US-ASTRAZENECA-2008UW08176

PATIENT
  Age: 456 Month
  Sex: Female
  Weight: 63.5 kg

DRUGS (3)
  1. FASLODEX [Suspect]
     Route: 030
  2. ADVIL [Concomitant]
     Dosage: PRN
  3. FASLODEX [Suspect]
     Indication: BREAST CANCER METASTATIC
     Route: 030

REACTIONS (4)
  - ARTHRALGIA [None]
  - ALOPECIA [None]
  - RECURRENT CANCER [None]
  - BONE PAIN [None]
